FAERS Safety Report 6656172-1 (Version None)
Quarter: 2010Q1

REPORT INFORMATION
  Report Type: 
  Country: None (occurrence: None)
  Receive Date: 20100329
  Receipt Date: 20100323
  Transmission Date: 20100710
  Serious: Yes (Life-Threatening)
  Sender: FDA-Public Use
  Company Number: DE-ELI_LILLY_AND_COMPANY-DE201003006228

PATIENT
  Age: 51 Year
  Sex: Male
  Weight: 90 kg

DRUGS (1)
  1. BYETTA [Suspect]
     Indication: DIABETES MELLITUS
     Dosage: 1 D/F, DAILY (1/D)
     Route: 058

REACTIONS (4)
  - ABDOMINAL DISTENSION [None]
  - FACE OEDEMA [None]
  - RASH GENERALISED [None]
  - TONGUE OEDEMA [None]
